FAERS Safety Report 20049348 (Version 1)
Quarter: 2021Q4

REPORT INFORMATION
  Report Type: Spontaneous
  Country: US (occurrence: US)
  Receive Date: 20211109
  Receipt Date: 20211109
  Transmission Date: 20220303
  Serious: No
  Sender: FDA-Public Use
  Company Number: US-GW PHARMA-202111USGW05365

PATIENT

DRUGS (1)
  1. EPIDIOLEX [Suspect]
     Active Substance: CANNABIDIOL
     Indication: Idiopathic generalised epilepsy
     Dosage: 4.82 MG/KG/DAY 200 MILLIGRAM, BID
     Route: 048
     Dates: start: 20200728

REACTIONS (3)
  - Mood swings [Unknown]
  - Agitation [Unknown]
  - Product use in unapproved indication [Unknown]
